FAERS Safety Report 10286409 (Version 2)
Quarter: 2014Q3

REPORT INFORMATION
  Report Type: Spontaneous
  Country: US (occurrence: US)
  Receive Date: 20140709
  Receipt Date: 20140814
  Transmission Date: 20150326
  Serious: No
  Sender: FDA-Public Use
  Company Number: US-PFIZER INC-2014189454

PATIENT
  Age: 69 Year
  Sex: Female

DRUGS (6)
  1. ESCITALOPRAM [Concomitant]
     Active Substance: ESCITALOPRAM OXALATE
     Indication: DEPRESSION
     Dosage: UNK
  2. NIACIN. [Concomitant]
     Active Substance: NIACIN
     Indication: BLOOD CHOLESTEROL INCREASED
     Dosage: UNK
  3. EFFEXOR [Suspect]
     Active Substance: VENLAFAXINE HYDROCHLORIDE
     Indication: DEPRESSION
     Dosage: UNK
  4. EFFEXOR [Suspect]
     Active Substance: VENLAFAXINE HYDROCHLORIDE
     Dosage: UNK
     Dates: start: 201311
  5. LEXAPRO [Concomitant]
     Active Substance: ESCITALOPRAM OXALATE
     Indication: DEPRESSION
     Dosage: UNK
  6. ARMOUR THYROID [Suspect]
     Active Substance: THYROID, PORCINE\THYROID, UNSPECIFIED
     Indication: HYPOTHYROIDISM
     Dosage: 60 MG, 1X/DAY (60MG, 1 IN 1 D)
     Route: 048
     Dates: end: 201406

REACTIONS (12)
  - Muscular weakness [Recovering/Resolving]
  - Ear discomfort [Recovering/Resolving]
  - Tinnitus [Recovering/Resolving]
  - Viral infection [Recovered/Resolved]
  - Thyroxine decreased [Unknown]
  - Confusional state [Recovering/Resolving]
  - Fatigue [Recovering/Resolving]
  - Dizziness [Recovering/Resolving]
  - Anxiety [Recovering/Resolving]
  - Balance disorder [Recovering/Resolving]
  - Vision blurred [Recovering/Resolving]
  - Tri-iodothyronine increased [Unknown]

NARRATIVE: CASE EVENT DATE: 2014
